FAERS Safety Report 18394985 (Version 4)
Quarter: 2023Q2

REPORT INFORMATION
  Report Type: Spontaneous
  Country: SI (occurrence: SI)
  Receive Date: 20201016
  Receipt Date: 20230516
  Transmission Date: 20230722
  Serious: Yes (Other)
  Sender: FDA-Public Use
  Company Number: SI-ALXN-A201602280

PATIENT
  Age: 37 Year
  Sex: Female

DRUGS (11)
  1. SOLIRIS [Suspect]
     Active Substance: ECULIZUMAB
     Dosage: 1200 MG, Q2W
     Route: 065
  2. SOLIRIS [Suspect]
     Active Substance: ECULIZUMAB
     Dosage: 1200 MG, UNK
     Route: 042
  3. SOLIRIS [Suspect]
     Active Substance: ECULIZUMAB
     Dosage: 1500 MG, Q2W
     Route: 065
  4. SOLIRIS [Suspect]
     Active Substance: ECULIZUMAB
     Indication: Paroxysmal nocturnal haemoglobinuria
     Dosage: 900 MG, UNK
     Route: 042
  5. SOLIRIS [Suspect]
     Active Substance: ECULIZUMAB
     Dosage: 900 MG, UNK
     Route: 065
     Dates: start: 201106
  6. B12                                /00056201/ [Concomitant]
     Indication: Product used for unknown indication
     Dosage: UNK
     Route: 065
  7. DEFERASIROX [Concomitant]
     Active Substance: DEFERASIROX
     Indication: Product used for unknown indication
     Dosage: UNK
     Route: 065
  8. FOLIC ACID [Concomitant]
     Active Substance: FOLIC ACID
     Indication: Product used for unknown indication
     Dosage: UNK
     Route: 065
     Dates: start: 2008, end: 2010
  9. OHB 12 [Concomitant]
     Indication: Blood lactate dehydrogenase abnormal
     Dosage: UNK
     Route: 065
     Dates: start: 2008, end: 2010
  10. OHB 12 [Concomitant]
     Dosage: UNK
     Route: 065
     Dates: start: 2020, end: 2021
  11. WARFARIN [Concomitant]
     Active Substance: WARFARIN
     Indication: Product used for unknown indication
     Dosage: UNK
     Route: 065

REACTIONS (4)
  - Premature delivery [Unknown]
  - Exposure during pregnancy [Unknown]
  - Total complement activity decreased [Unknown]
  - Off label use [Unknown]

NARRATIVE: CASE EVENT DATE: 20160101
